FAERS Safety Report 15908722 (Version 2)
Quarter: 2019Q2

REPORT INFORMATION
  Report Type: Spontaneous
  Country: IL (occurrence: IL)
  Receive Date: 20190204
  Receipt Date: 20190405
  Transmission Date: 20190711
  Serious: Yes (Hospitalization, Other)
  Sender: FDA-Public Use
  Company Number: IL-JNJFOC-20190202022

PATIENT
  Age: 50 Year
  Sex: Male

DRUGS (15)
  1. CLEXANE [Concomitant]
     Active Substance: ENOXAPARIN SODIUM
     Route: 058
  2. XARELTO [Suspect]
     Active Substance: RIVAROXABAN
     Indication: ANTIPHOSPHOLIPID SYNDROME
     Route: 048
     Dates: start: 201811, end: 201901
  3. COUMADIN [Concomitant]
     Active Substance: WARFARIN SODIUM
     Route: 048
  4. COUMADIN [Concomitant]
     Active Substance: WARFARIN SODIUM
     Route: 048
     Dates: start: 20190107
  5. XARELTO [Suspect]
     Active Substance: RIVAROXABAN
     Indication: ANTIPHOSPHOLIPID SYNDROME
     Route: 048
     Dates: start: 2018, end: 20181227
  6. COUMADIN [Concomitant]
     Active Substance: WARFARIN SODIUM
     Route: 048
     Dates: start: 20190108
  7. XARELTO [Suspect]
     Active Substance: RIVAROXABAN
     Indication: EMBOLISM VENOUS
     Route: 048
     Dates: start: 2018, end: 20181227
  8. XARELTO [Suspect]
     Active Substance: RIVAROXABAN
     Indication: PULMONARY EMBOLISM
     Route: 048
     Dates: start: 2018, end: 20181227
  9. XARELTO [Suspect]
     Active Substance: RIVAROXABAN
     Indication: PULMONARY EMBOLISM
     Route: 048
     Dates: start: 201811, end: 201901
  10. OPTALGIN [Concomitant]
     Active Substance: METAMIZOLE
     Route: 048
  11. ESOMEPRAZOLE. [Concomitant]
     Active Substance: ESOMEPRAZOLE MAGNESIUM
     Route: 048
  12. XARELTO [Suspect]
     Active Substance: RIVAROXABAN
     Indication: EMBOLISM VENOUS
     Route: 048
     Dates: start: 201811, end: 201901
  13. CARDILOC [Concomitant]
     Active Substance: BISOPROLOL FUMARATE
     Route: 048
  14. LIPITOR [Concomitant]
     Active Substance: ATORVASTATIN CALCIUM
     Route: 048
  15. COUMADIN [Concomitant]
     Active Substance: WARFARIN SODIUM
     Route: 048

REACTIONS (18)
  - Endocarditis noninfective [Unknown]
  - Photophobia [Unknown]
  - Pleural effusion [Unknown]
  - Pain in extremity [Unknown]
  - Troponin increased [Unknown]
  - Fibrin D dimer increased [Unknown]
  - Arteriosclerosis coronary artery [Unknown]
  - Thrombocytopenia [Unknown]
  - Off label use [Unknown]
  - Chest pain [Unknown]
  - Abdominal tenderness [Unknown]
  - Splenic infarction [Recovered/Resolved]
  - Depressed mood [Unknown]
  - Product use in unapproved indication [Recovered/Resolved]
  - Acute kidney injury [Recovered/Resolved]
  - Sinus tachycardia [Unknown]
  - Intracardiac thrombus [Recovered/Resolved]
  - Intentional product use issue [Unknown]

NARRATIVE: CASE EVENT DATE: 201801
